FAERS Safety Report 9550536 (Version 8)
Quarter: 2014Q4

REPORT INFORMATION
  Report Type: Report from Study
  Country: US (occurrence: US)
  Receive Date: 20130924
  Receipt Date: 20141215
  Transmission Date: 20150529
  Serious: Yes (Hospitalization)
  Sender: FDA-Public Use
  Company Number: US-SANOFI-AVENTIS-2013SA030021

PATIENT
  Age: 60 Year
  Sex: Female
  Weight: 68.03 kg

DRUGS (3)
  1. REBIF [Concomitant]
     Active Substance: INTERFERON BETA-1A
     Dates: start: 20130701, end: 20130825
  2. AUBAGIO [Suspect]
     Active Substance: TERIFLUNOMIDE
     Indication: MULTIPLE SCLEROSIS
     Route: 048
     Dates: start: 20130826
  3. AUBAGIO [Suspect]
     Active Substance: TERIFLUNOMIDE
     Indication: MULTIPLE SCLEROSIS
     Route: 048
     Dates: start: 20130228, end: 20130621

REACTIONS (5)
  - Fatigue [Unknown]
  - Malaise [Recovered/Resolved]
  - Arthritis [Unknown]
  - Drug dose omission [Unknown]
  - Surgery [Unknown]

NARRATIVE: CASE EVENT DATE: 20130310
